FAERS Safety Report 7624273-7 (Version None)
Quarter: 2011Q3

REPORT INFORMATION
  Report Type: 
  Country: None (occurrence: None)
  Receive Date: 20110720
  Receipt Date: 20110630
  Transmission Date: 20111222
  Serious: Yes (Other)
  Sender: FDA-Public Use
  Company Number: US-BAYER-2011-037520

PATIENT
  Age: 27 Year
  Sex: Female

DRUGS (4)
  1. VITAMIN D [Concomitant]
     Dosage: 1000 IU, QD
     Dates: start: 20110415
  2. INTERFERON BETA-1B [Suspect]
     Dosage: UNK
     Dates: start: 20071208, end: 20071220
  3. PRENATAL VITAMINS [VIT C,VIT H,MIN NOS,VIT PP,RETINOL,VIT E,VIT B [Concomitant]
     Indication: PREGNANCY
     Dosage: 1 TABLET, QD
     Dates: start: 20110415
  4. INTERFERON BETA-1B [Suspect]
     Dosage: QOD
     Route: 058
     Dates: start: 20080426, end: 20110430

REACTIONS (3)
  - PREGNANCY [None]
  - POLLAKIURIA [None]
  - MATERNAL EXPOSURE DURING PREGNANCY [None]
